FAERS Safety Report 6003068-4 (Version None)
Quarter: 2008Q4

REPORT INFORMATION
  Report Type: 
  Country: None (occurrence: None)
  Receive Date: 20081216
  Receipt Date: 20081202
  Transmission Date: 20090506
  Serious: Yes (Other)
  Sender: FDA-Public Use
  Company Number: BR-RANBAXY-2008R5-19763

PATIENT

DRUGS (2)
  1. ISOTRETINOINA [Suspect]
     Indication: ACNE
     Dosage: 20 MG, QD
     Route: 048
     Dates: start: 20081122, end: 20081202
  2. SELENE [Concomitant]

REACTIONS (5)
  - DIZZINESS [None]
  - GENERALISED ERYTHEMA [None]
  - HYPOTENSION [None]
  - SYNCOPE [None]
  - WOUND [None]
